FAERS Safety Report 16357172 (Version 1)
Quarter: 2019Q2

REPORT INFORMATION
  Report Type: Spontaneous
  Country: US (occurrence: US)
  Receive Date: 20190527
  Receipt Date: 20190527
  Transmission Date: 20190711
  Serious: Yes (Other)
  Sender: FDA-Public Use
  Company Number: US-APOTEX-2019AP015266

PATIENT
  Age: 81 Year
  Sex: Male

DRUGS (4)
  1. GABAPENTIN. [Suspect]
     Active Substance: GABAPENTIN
     Indication: PENILE PAIN
     Route: 065
  2. PREGABALIN. [Suspect]
     Active Substance: PREGABALIN
     Indication: PENILE PAIN
     Route: 065
  3. GABAPENTIN. [Suspect]
     Active Substance: GABAPENTIN
     Indication: TESTICULAR PAIN
  4. PREGABALIN. [Suspect]
     Active Substance: PREGABALIN
     Indication: TESTICULAR PAIN

REACTIONS (3)
  - Urinary incontinence [Unknown]
  - Therapy partial responder [Unknown]
  - Off label use [Unknown]
